FAERS Safety Report 8198114-6 (Version None)
Quarter: 2012Q1

REPORT INFORMATION
  Report Type: 
  Country: None (occurrence: None)
  Receive Date: 20120309
  Receipt Date: 20120229
  Transmission Date: 20120608
  Serious: Yes (Other)
  Sender: FDA-Public Use
  Company Number: JP-JNJFOC-20120302156

PATIENT
  Sex: Female

DRUGS (8)
  1. GABAPENTIN [Concomitant]
     Route: 048
     Dates: start: 20090107, end: 20090219
  2. GABAPENTIN [Concomitant]
     Route: 048
     Dates: start: 20090220, end: 20100812
  3. TOPIRAMATE [Suspect]
     Indication: EPILEPSY
     Route: 048
     Dates: start: 20080711
  4. PHENYTOIN SODIUM CAP [Suspect]
     Route: 048
     Dates: start: 20050101
  5. CARBAMAZEPINE [Concomitant]
     Route: 048
     Dates: start: 20000101
  6. PHENOBARBITAL TAB [Concomitant]
     Route: 048
     Dates: start: 20000101
  7. PHENYTOIN SODIUM CAP [Suspect]
     Indication: EPILEPSY
     Route: 048
  8. ZONISAMIDE [Concomitant]
     Route: 048
     Dates: start: 20040101

REACTIONS (1)
  - CYANOSIS [None]
